FAERS Safety Report 18466293 (Version 1)
Quarter: 2020Q4

REPORT INFORMATION
  Report Type: Spontaneous
  Country: CN (occurrence: CN)
  Receive Date: 20201105
  Receipt Date: 20201105
  Transmission Date: 20210114
  Serious: Yes (Other)
  Sender: FDA-Public Use
  Company Number: CN-BAXTER-2020BAX022412

PATIENT
  Age: 65 Year
  Sex: Female
  Weight: 52.5 kg

DRUGS (5)
  1. 0.9% SODIUM CHLORIDE INJECTION [Suspect]
     Active Substance: SODIUM CHLORIDE
     Dosage: PIRUBICIN HYDROCHLORIDE 128 MG + NS 100 ML
     Route: 041
     Dates: start: 20200728, end: 20200728
  2. ENDOXAN [Suspect]
     Active Substance: CYCLOPHOSPHAMIDE
     Indication: BREAST CANCER FEMALE
     Dosage: CYCLOPHOSPHAMIDE 850 MG + NS 45 ML
     Route: 042
     Dates: start: 20200728, end: 20200728
  3. PHARMORUBICIN [Suspect]
     Active Substance: EPIRUBICIN
     Indication: BREAST CANCER FEMALE
     Dosage: PIRUBICIN HYDROCHLORIDE 128 MG + NS 100 ML
     Route: 041
     Dates: start: 20200728, end: 20200728
  4. PEGFILGRASTIM [Concomitant]
     Active Substance: PEGFILGRASTIM
     Indication: PROPHYLAXIS
     Route: 058
     Dates: start: 20200730
  5. 0.9% SODIUM CHLORIDE INJECTION [Suspect]
     Active Substance: SODIUM CHLORIDE
     Indication: MEDICATION DILUTION
     Dosage: CYCLOPHOSPHAMIDE 850 MG + NS 45 ML
     Route: 042
     Dates: start: 20200728, end: 20200728

REACTIONS (2)
  - Agranulocytosis [Recovering/Resolving]
  - Leukopenia [Recovering/Resolving]

NARRATIVE: CASE EVENT DATE: 20200804
